FAERS Safety Report 6022177-7 (Version None)
Quarter: 2008Q4

REPORT INFORMATION
  Report Type: 
  Country: None (occurrence: None)
  Receive Date: 20081229
  Receipt Date: 20081223
  Transmission Date: 20090506
  Serious: Yes (Other)
  Sender: FDA-Public Use
  Company Number: GB-B.I. PHARMACEUTICALS,INC./RIDGEFIELD-2008-UK-01917UK

PATIENT
  Age: 77 Year
  Sex: Female

DRUGS (7)
  1. PRAMIPEXOLE DIHYDROCHLORIDE [Suspect]
     Indication: RESTLESS LEGS SYNDROME
     Dosage: 88MCG
     Route: 048
     Dates: end: 20081204
  2. MIRTAZAPINE [Suspect]
     Indication: DEPRESSION
     Dosage: 30MG
     Route: 048
     Dates: start: 20081020
  3. MIRTAZAPINE [Suspect]
     Dosage: 45MG
     Route: 048
     Dates: start: 20081130
  4. ANASTROZOLE [Concomitant]
     Indication: BREAST CANCER
     Dosage: 1MG
     Route: 048
     Dates: start: 20071108
  5. ATENOLOL [Concomitant]
     Indication: HYPERTENSION
     Dosage: 5G
     Route: 048
  6. CANDESARTAN [Concomitant]
     Indication: HYPERTENSION
     Dosage: 16MG
     Dates: start: 20070101
  7. FELODIPINE [Concomitant]
     Indication: HYPERTENSION
     Dosage: 10MG
     Route: 048
     Dates: start: 20080501

REACTIONS (2)
  - DRUG INTERACTION [None]
  - ORGASM ABNORMAL [None]
